FAERS Safety Report 5285179-4 (Version None)
Quarter: 2007Q2

REPORT INFORMATION
  Report Type: 
  Country: None (occurrence: None)
  Receive Date: 20070403
  Receipt Date: 20070330
  Transmission Date: 20071010
  Serious: Yes (Death, Other)
  Sender: FDA-Public Use
  Company Number: 2006UW11797

PATIENT
  Age: 55 Year
  Sex: Male
  Weight: 109.1 kg

DRUGS (11)
  1. SEROQUEL [Suspect]
     Indication: ANXIETY
     Route: 048
     Dates: start: 20030101
  2. SEROQUEL [Suspect]
     Indication: INSOMNIA
     Route: 048
     Dates: start: 20030101
  3. ZYPREXA [Suspect]
  4. ABILIFY [Concomitant]
  5. CLOZARIL [Concomitant]
  6. GEODON [Concomitant]
  7. HALDOL [Concomitant]
  8. NAVANE [Concomitant]
  9. RISPERDAL [Concomitant]
  10. THORAZINE [Concomitant]
  11. TRILAFON [Concomitant]

REACTIONS (4)
  - DEATH [None]
  - DIABETES MELLITUS [None]
  - NEUROLEPTIC MALIGNANT SYNDROME [None]
  - TARDIVE DYSKINESIA [None]
